FAERS Safety Report 5080751-9 (Version None)
Quarter: 2006Q3

REPORT INFORMATION
  Report Type: 
  Country: None (occurrence: None)
  Receive Date: 20060809
  Receipt Date: 20060801
  Transmission Date: 20061208
  Serious: Yes (Hospitalization)
  Sender: FDA-Public Use
  Company Number: 2006090069

PATIENT
  Age: 47 Year
  Sex: Male
  Weight: 90 kg

DRUGS (3)
  1. SULFASALAZINE [Suspect]
     Indication: DRUG USE FOR UNKNOWN INDICATION
     Dosage: 3 GRAM (EVERY DAY), ORAL
     Route: 048
     Dates: start: 20060126, end: 20060411
  2. PREDNISONE TAB [Concomitant]
  3. AMITRITPYLINE (AMITRIPTYLINE) [Concomitant]

REACTIONS (8)
  - AGITATION [None]
  - ENCEPHALITIS [None]
  - INFLAMMATION [None]
  - LEUKOCYTOSIS [None]
  - MENINGITIS ASEPTIC [None]
  - THROMBOCYTHAEMIA [None]
  - TREMOR [None]
  - TULARAEMIA [None]
